FAERS Safety Report 4622711-5 (Version None)
Quarter: 2005Q1

REPORT INFORMATION
  Report Type: 
  Country: None (occurrence: None)
  Receive Date: 20050329
  Receipt Date: 20050329
  Transmission Date: 20050727
  Serious: Yes (Other)
  Sender: FDA-Public Use
  Company Number: None

PATIENT
  Age: 46 Year
  Sex: Male
  Weight: 100 kg

DRUGS (1)
  1. ACETAMINOPHEN [Suspect]
     Indication: HEADACHE
     Dosage: 16-20 TABLET DAILY ORAL
     Route: 048
     Dates: start: 20050123, end: 20050325

REACTIONS (3)
  - HEPATOTOXICITY [None]
  - MEDICATION ERROR [None]
  - SELF-MEDICATION [None]
